FAERS Safety Report 18494310 (Version 1)
Quarter: 2020Q4

REPORT INFORMATION
  Report Type: Report from Study
  Country: None (occurrence: US)
  Receive Date: 20201111
  Receipt Date: 20201111
  Transmission Date: 20210114
  Serious: Yes (Disabling)
  Sender: FDA-Public Use
  Company Number: US-ABBVIE-20K-163-3231699-00

PATIENT
  Age: 53 Year
  Sex: Female

DRUGS (2)
  1. HUMIRA [Suspect]
     Active Substance: ADALIMUMAB
     Indication: ANKYLOSING SPONDYLITIS
     Dosage: CITRATE FREE
     Route: 058
     Dates: start: 2010
  2. HUMIRA [Suspect]
     Active Substance: ADALIMUMAB
     Indication: UVEITIS
     Route: 058

REACTIONS (9)
  - Uveitis [Not Recovered/Not Resolved]
  - Pain [Not Recovered/Not Resolved]
  - Iritis [Unknown]
  - Therapeutic product effect decreased [Recovered/Resolved]
  - Intentional product misuse [Unknown]
  - COVID-19 [Recovering/Resolving]
  - Eye pain [Unknown]
  - Blindness unilateral [Unknown]
  - Herpes zoster [Recovering/Resolving]

NARRATIVE: CASE EVENT DATE: 20191222
